FAERS Safety Report 6465836-4 (Version None)
Quarter: 2009Q4

REPORT INFORMATION
  Report Type: 
  Country: None (occurrence: None)
  Receive Date: 20091127
  Receipt Date: 20091116
  Transmission Date: 20100525
  Serious: Yes (Other)
  Sender: FDA-Public Use
  Company Number: 2004041000

PATIENT
  Age: 53 Year
  Sex: Male
  Weight: 65.7716 kg

DRUGS (5)
  1. ZYRTEC [Suspect]
     Indication: NASOPHARYNGITIS
     Dosage: ORAL
     Route: 048
     Dates: start: 20040601, end: 20040627
  2. RELPAX [Suspect]
     Indication: MIGRAINE
     Dosage: 40 MG (40 MG, AS NEEDED), ORAL
     Route: 048
     Dates: start: 20040524, end: 20040702
  3. CELEBREX [Suspect]
     Indication: BACK PAIN
     Dosage: ORAL
     Route: 048
     Dates: end: 20040627
  4. CAFFEINE CITRATE [Suspect]
     Indication: ILL-DEFINED DISORDER
  5. ASPIRIN [Suspect]
     Indication: ILL-DEFINED DISORDER
     Dosage: ORAL
     Route: 048
     Dates: end: 20040627

REACTIONS (16)
  - ASTHENIA [None]
  - BACK PAIN [None]
  - CHEST DISCOMFORT [None]
  - CONDITION AGGRAVATED [None]
  - DRUG DEPENDENCE [None]
  - DRUG INEFFECTIVE [None]
  - EPISTAXIS [None]
  - HAEMOPTYSIS [None]
  - HEADACHE [None]
  - INCORRECT DOSE ADMINISTERED [None]
  - MIGRAINE [None]
  - NASAL DRYNESS [None]
  - NASOPHARYNGITIS [None]
  - PSYCHOMOTOR HYPERACTIVITY [None]
  - SOMNOLENCE [None]
  - UNEVALUABLE EVENT [None]
